FAERS Safety Report 20872324 (Version 1)
Quarter: 2022Q2

REPORT INFORMATION
  Report Type: Spontaneous
  Country: US (occurrence: None)
  Receive Date: 20220525
  Receipt Date: 20220525
  Transmission Date: 20220721
  Serious: Yes (Other)
  Sender: FDA-Public Use
  Company Number: None

PATIENT
  Age: 44 Year
  Sex: Female
  Weight: 63 kg

DRUGS (2)
  1. CEFDINIR [Suspect]
     Active Substance: CEFDINIR
     Indication: Ear infection
     Dosage: FREQUENCY : TWICE A DAY;?
     Route: 048
     Dates: start: 20220517, end: 20220519
  2. CEFDINIR [Suspect]
     Active Substance: CEFDINIR
     Indication: Sinusitis

REACTIONS (3)
  - Dyspnoea [None]
  - Chest discomfort [None]
  - Cough [None]

NARRATIVE: CASE EVENT DATE: 20220519
